FAERS Safety Report 5032757-3 (Version None)
Quarter: 2006Q2

REPORT INFORMATION
  Report Type: 
  Country: None (occurrence: None)
  Receive Date: 20060620
  Receipt Date: 20060620
  Transmission Date: 20061013
  Serious: Yes (Death, Life-Threatening)
  Sender: FDA-Public Use
  Company Number: None

PATIENT
  Age: 84 Year
  Sex: Female
  Weight: 30.0281 kg

DRUGS (17)
  1. HEPARIN SODIUM 25,000 UNITS IN DEXTROSE 5% [Suspect]
     Indication: ATRIAL FIBRILLATION
     Dosage: 18 UNITS /KG/HR ADJUST PER PTT CONTINUOUS INFUSION IV DRIP
     Route: 041
     Dates: start: 20050803, end: 20050815
  2. HEPARIN SODIUM 25,000 UNITS IN DEXTROSE 5% [Suspect]
     Indication: MITRAL VALVE REPLACEMENT
     Dosage: 18 UNITS /KG/HR ADJUST PER PTT CONTINUOUS INFUSION IV DRIP
     Route: 041
     Dates: start: 20050803, end: 20050815
  3. HEPARIN SODIUM 25,000 UNITS IN DEXTROSE 5% [Suspect]
     Indication: MYOCARDIAL INFARCTION
     Dosage: 18 UNITS /KG/HR ADJUST PER PTT CONTINUOUS INFUSION IV DRIP
     Route: 041
     Dates: start: 20050803, end: 20050815
  4. FUROSEMIDE [Concomitant]
  5. DIPHENHYDRAMINE HCL [Concomitant]
  6. ENALAPRIL [Concomitant]
  7. ONDANSETRON HCL [Concomitant]
  8. GLIPIZIDE [Concomitant]
  9. METOPOLOL [Concomitant]
  10. RAMIPRIL [Concomitant]
  11. REGULAR INSULIN [Concomitant]
  12. ASPIRIN [Concomitant]
  13. SIMVASTATIN [Concomitant]
  14. BISACODYL [Concomitant]
  15. LORAZEPAM [Concomitant]
  16. PANTOPRAZOLE [Concomitant]
  17. PAROXETINE HCL [Concomitant]

REACTIONS (7)
  - CARDIAC FAILURE CONGESTIVE [None]
  - CEREBRAL HAEMORRHAGE [None]
  - GENERAL PHYSICAL HEALTH DETERIORATION [None]
  - HYPERVENTILATION [None]
  - INTERNATIONAL NORMALISED RATIO DECREASED [None]
  - LOSS OF CONSCIOUSNESS [None]
  - MYOCARDIAL INFARCTION [None]
